FAERS Safety Report 21479771 (Version 1)
Quarter: 2022Q4

REPORT INFORMATION
  Report Type: Spontaneous
  Country: US (occurrence: US)
  Receive Date: 20221019
  Receipt Date: 20221019
  Transmission Date: 20230113
  Serious: No
  Sender: FDA-Public Use
  Company Number: US-BAYER-2022A143616

PATIENT
  Age: 56 Year
  Sex: Female

DRUGS (3)
  1. ALEVE [Suspect]
     Active Substance: NAPROXEN SODIUM
     Indication: Pain
     Dosage: 8 DF, QD
     Route: 048
     Dates: start: 20220929, end: 20221013
  2. ALEVE [Suspect]
     Active Substance: NAPROXEN SODIUM
     Dosage: 6 DF, QD
     Route: 048
     Dates: start: 20220930, end: 20220930
  3. METFORMIN [Concomitant]
     Active Substance: METFORMIN HYDROCHLORIDE
     Dosage: UNK

REACTIONS (4)
  - Drug ineffective [None]
  - Drug ineffective [None]
  - Extra dose administered [Recovered/Resolved]
  - Extra dose administered [Recovered/Resolved]

NARRATIVE: CASE EVENT DATE: 20220929
